FAERS Safety Report 21741994 (Version 1)
Quarter: 2022Q4

REPORT INFORMATION
  Report Type: Report from Study
  Country: IN (occurrence: IN)
  Receive Date: 20221216
  Receipt Date: 20221216
  Transmission Date: 20230113
  Serious: Yes (Hospitalization)
  Sender: FDA-Public Use
  Company Number: IN-PFIZER INC-PV202200111076

PATIENT
  Age: 11 Year
  Sex: Female
  Weight: 28 kg

DRUGS (10)
  1. IRINOTECAN HYDROCHLORIDE [Suspect]
     Active Substance: IRINOTECAN HYDROCHLORIDE
     Indication: Ewing^s sarcoma
     Dosage: 50 MG/M2, ONCE DAILY (OD)  IN 500 ML 5% DEXTROSE OVER 90 MINS D1-D5 EVERY 3 WEEKS
     Route: 042
     Dates: start: 20221114, end: 20221118
  2. PALBOCICLIB [Suspect]
     Active Substance: PALBOCICLIB
     Indication: Ewing^s sarcoma
     Dosage: 75 MG/M2, ONCE DAILY (OD) (CYCLE 1 D1-D14. STOPPED ON DAY 10)
     Route: 048
     Dates: start: 20221114, end: 20221123
  3. TEMOZOLOMIDE [Suspect]
     Active Substance: TEMOZOLOMIDE
     Indication: Ewing^s sarcoma
     Dosage: 100 MG/M2, ONCE DAILY (OD) (D1-D5)
     Route: 048
     Dates: start: 20221114, end: 20221118
  4. CEFIXIME [Concomitant]
     Active Substance: CEFIXIME
     Indication: Prophylaxis against diarrhoea
     Dosage: 224 MG, ONCE DAILY (OD)
     Route: 048
     Dates: start: 20221112, end: 20221118
  5. ONDANSETRON HYDROCHLORIDE [Concomitant]
     Active Substance: ONDANSETRON HYDROCHLORIDE
     Indication: Antiemetic supportive care
     Dosage: 4 MG, ONCE DAILY (OD)
     Route: 042
     Dates: start: 20221114, end: 20221118
  6. ONDANSETRON HYDROCHLORIDE [Concomitant]
     Active Substance: ONDANSETRON HYDROCHLORIDE
     Indication: Prophylaxis of nausea and vomiting
  7. DEXAMETHASONE [Concomitant]
     Active Substance: DEXAMETHASONE
     Indication: Prophylaxis against diarrhoea
     Dosage: 4 MG, ONCE DAILY (OD)
     Route: 042
     Dates: start: 20221114, end: 20221118
  8. GRILINCTUS [CHLORPHENAMINE MALEATE;DEXTROMETHORPHAN HYDROBROMIDE;PHENY [Concomitant]
     Indication: Cough
     Dosage: 1 TSF, THREE TIMES A DAY
     Route: 048
     Dates: start: 20221112, end: 20221118
  9. ONDANSETRON [Concomitant]
     Active Substance: ONDANSETRON
     Indication: Prophylaxis of nausea and vomiting
     Dosage: 4 MG, 1X/DAY
     Route: 042
     Dates: start: 20221114, end: 20221118
  10. ONDANSETRON [Concomitant]
     Active Substance: ONDANSETRON
     Indication: Antiemetic supportive care

REACTIONS (3)
  - Febrile neutropenia [Recovered/Resolved]
  - Diarrhoea [Recovered/Resolved]
  - Anaemia [Recovered/Resolved]

NARRATIVE: CASE EVENT DATE: 20221122
